FAERS Safety Report 10504858 (Version 1)
Quarter: 2014Q3

REPORT INFORMATION
  Report Type: Spontaneous
  Country: US (occurrence: None)
  Receive Date: 20140915
  Receipt Date: 20140915
  Transmission Date: 20150326
  Serious: Yes (Other)
  Sender: FDA-Public Use
  Company Number: JPI-P-034435

PATIENT
  Age: 43 Year
  Sex: Female
  Weight: 52.3 kg

DRUGS (11)
  1. LEVONGESTREL, ETHYL ESTRADIOL (EUGYNON) [Concomitant]
  2. ELETRIPTAN HYDROBROMIDE (ELETRIPTAN HYDROBROMIDE) [Concomitant]
  3. HYDROCODONE BITARTRATE AND ACETAMINOPHEN (HYDROCODONE BITARTRATE) [Concomitant]
  4. PROMETHAZINE [Concomitant]
     Active Substance: PROMETHAZINE\PROMETHAZINE HYDROCHLORIDE
  5. BUPROPION HYDROBROMIDE (BUPROPION HYDROBROMIDE) [Concomitant]
  6. CHLORZOXZANE (CHLORZOXAZONE) [Concomitant]
  7. TEMAZEPAM (TEMAZEPAM) [Concomitant]
     Active Substance: TEMAZEPAM
  8. AMPHETAMINE, DEXTROAMPHETAMINE MIXED SALTS (PSYCHOSTIMULANTS AND NOOTROPICS) [Concomitant]
  9. ACETAMINOPEHN, ISOMETHEPENE AND DICHLORPHENAZONE CAPSULE [Concomitant]
  10. XYREM [Suspect]
     Active Substance: SODIUM OXYBATE
     Indication: NARCOLEPSY
     Route: 048
     Dates: start: 20061224
  11. LITHIUM CARBONATE (LITHIUM CARBONATE) [Concomitant]
     Active Substance: LITHIUM CARBONATE

REACTIONS (20)
  - Tachycardia [None]
  - Increased tendency to bruise [None]
  - Muscular weakness [None]
  - Fatigue [None]
  - Arthralgia [None]
  - Blood pressure increased [None]
  - Hypoaesthesia [None]
  - Anxiety [None]
  - Chest pain [None]
  - Oedema [None]
  - Decreased appetite [None]
  - Headache [None]
  - Intentional product misuse [None]
  - Back pain [None]
  - Tremor [None]
  - Confusional state [None]
  - Weight decreased [None]
  - Pain in extremity [None]
  - Memory impairment [None]
  - Blood potassium increased [None]

NARRATIVE: CASE EVENT DATE: 2013
